FAERS Safety Report 17944888 (Version 2)
Quarter: 2020Q2

REPORT INFORMATION
  Report Type: Spontaneous
  Country: AT (occurrence: AT)
  Receive Date: 20200625
  Receipt Date: 20200630
  Transmission Date: 20200714
  Serious: Yes (Other)
  Sender: FDA-Public Use
  Company Number: AT-SA-2020SA162310

PATIENT

DRUGS (9)
  1. ROSUVASTATIN. [Concomitant]
     Active Substance: ROSUVASTATIN
     Dosage: 40 MG, QD
     Route: 048
     Dates: end: 20200331
  2. CONCOR [Concomitant]
     Active Substance: BISOPROLOL FUMARATE
     Dosage: 0.5 DF, QD
     Route: 048
     Dates: end: 20200401
  3. POTASSIUM CHLORIDE. [Concomitant]
     Active Substance: POTASSIUM CHLORIDE
     Dosage: 6 DF, QD
     Route: 048
     Dates: end: 20200401
  4. PLAVIX [Suspect]
     Active Substance: CLOPIDOGREL BISULFATE
     Indication: VASCULAR GRAFT
     Dosage: 1 DF, QD
     Route: 048
     Dates: start: 20191210, end: 202004
  5. THROMBO ASS [Concomitant]
     Active Substance: ASPIRIN
     Dosage: 100 MG, QD
     Route: 048
     Dates: end: 20200401
  6. CLOPIDOGREL BISULFATE. [Suspect]
     Active Substance: CLOPIDOGREL BISULFATE
     Indication: VASCULAR GRAFT
     Dosage: 75 MG, QD
     Route: 048
     Dates: start: 202004
  7. ROSUVASTATIN. [Concomitant]
     Active Substance: ROSUVASTATIN
     Dosage: 20 MG, QD
     Route: 048
     Dates: start: 20200401
  8. PANTOPRAZOL [PANTOPRAZOLE SODIUM SESQUIHYDRATE] [Concomitant]
     Active Substance: PANTOPRAZOLE SODIUM
     Dosage: 40 MG, QD
     Route: 048
     Dates: end: 20200401
  9. Q10 [Concomitant]
     Active Substance: UBIDECARENONE
     Dosage: 1 DF
     Route: 048

REACTIONS (6)
  - Hypoaesthesia oral [Recovered/Resolved]
  - Drug eruption [Recovered/Resolved]
  - Drug eruption [Recovered/Resolved]
  - Peripheral coldness [Recovered/Resolved]
  - Peripheral coldness [Recovered/Resolved]
  - Hypoaesthesia oral [Recovered/Resolved]

NARRATIVE: CASE EVENT DATE: 202002
